FAERS Safety Report 25031289 (Version 1)
Quarter: 2025Q1

REPORT INFORMATION
  Report Type: Spontaneous
  Country: US (occurrence: None)
  Receive Date: 20250228
  Receipt Date: 20250228
  Transmission Date: 20250408
  Serious: Yes (Other)
  Sender: FDA-CTU
  Company Number: None

PATIENT
  Age: 71 Year
  Sex: Male
  Weight: 81 kg

DRUGS (1)
  1. ROHTO OPTIC GLOW [Suspect]
     Active Substance: NAPHAZOLINE HYDROCHLORIDE\POVIDONE\PROPYLENE GLYCOL
     Indication: Eye lubrication therapy
     Route: 047
     Dates: start: 20250225, end: 20250225

REACTIONS (4)
  - Eye irritation [None]
  - Vision blurred [None]
  - Ocular hyperaemia [None]
  - Superficial injury of eye [None]

NARRATIVE: CASE EVENT DATE: 20250225
